FAERS Safety Report 9445091 (Version 1)
Quarter: 2013Q3

REPORT INFORMATION
  Report Type: Spontaneous
  Country: US (occurrence: US)
  Receive Date: 20130807
  Receipt Date: 20130807
  Transmission Date: 20140515
  Serious: No
  Sender: FDA-Public Use
  Company Number: US-JNJFOC-20130707490

PATIENT
  Sex: Male
  Weight: 113.4 kg

DRUGS (3)
  1. INVEGA [Suspect]
     Indication: BIPOLAR DISORDER
     Route: 048
  2. INVEGA [Suspect]
     Indication: SCHIZOAFFECTIVE DISORDER
     Route: 048
  3. CORTISONE [Concomitant]
     Indication: DERMATITIS CONTACT
     Route: 065
     Dates: start: 201307

REACTIONS (3)
  - Muscle spasms [Not Recovered/Not Resolved]
  - Gastric disorder [Recovering/Resolving]
  - Myalgia [Not Recovered/Not Resolved]
